FAERS Safety Report 5645045-9 (Version None)
Quarter: 2008Q1

REPORT INFORMATION
  Report Type: 
  Country: None (occurrence: None)
  Receive Date: 20080229
  Receipt Date: 20080225
  Transmission Date: 20080703
  Serious: Yes (Other)
  Sender: FDA-Public Use
  Company Number: US-GENENTECH-254727

PATIENT
  Sex: Female
  Weight: 83.9 kg

DRUGS (6)
  1. AVASTIN [Suspect]
     Indication: GLIOBLASTOMA MULTIFORME
     Dosage: 10 MG/KG, Q2W
     Route: 042
     Dates: start: 20071029
  2. IRINOTECAN [Concomitant]
     Indication: GLIOBLASTOMA
     Dosage: 480 MG/5ML, Q2W
     Dates: start: 20071029, end: 20080121
  3. ALOXI [Concomitant]
     Indication: DRUG USE FOR UNKNOWN INDICATION
     Dosage: 250 A?G, UNK
  4. PREMEDICATION DRUGS [Concomitant]
     Indication: PREMEDICATION
  5. DECADRON [Concomitant]
     Indication: DRUG USE FOR UNKNOWN INDICATION
     Dosage: 10 MG, UNK
  6. ATROPINE [Concomitant]
     Indication: DRUG USE FOR UNKNOWN INDICATION
     Dosage: 400 A?G, UNK

REACTIONS (1)
  - SKIN DISORDER [None]
